FAERS Safety Report 4723691-4 (Version None)
Quarter: 2005Q3

REPORT INFORMATION
  Report Type: 
  Country: None (occurrence: None)
  Receive Date: 20050719
  Receipt Date: 20040803
  Transmission Date: 20060218
  Serious: Yes (Other)
  Sender: FDA-Public Use
  Company Number: 200410076BBE

PATIENT
  Sex: Male

DRUGS (19)
  1. KOATE [Suspect]
     Indication: HAEMOPHILIA
     Dosage: INTRAVENOUS
     Route: 042
  2. KONYNE [Suspect]
     Indication: HAEMOPHILIA
     Dosage: INTRAVENOUS
     Route: 042
  3. ANTIHEMOPHILIC FACTOR (HUMAN) [Suspect]
     Indication: HAEMOPHILIA
     Dosage: INTRAVENOUS
     Route: 042
  4. ANTIHEMOPHILIC FACTOR CONCENTRATE (BAXTER) (FACTOR IX) [Suspect]
     Indication: HAEMOPHILIA
     Dosage: INTRAVENOUS
     Route: 042
  5. ANTIHEMOPHILIC FACTOR CONCENTRATE (ARMOUR PHARMACEUTICALS) (FACTOR VII [Suspect]
     Indication: HAEMOPHILIA
     Dosage: INTRAVENOUS
     Route: 042
  6. FACTOR IX COMPLEX [Suspect]
     Indication: HAEMOPHILIA
     Dosage: INTRAVENOUS
     Route: 042
  7. ANTIHEMOPHILIC FACTOR (HUMAN) [Suspect]
     Indication: HAEMOPHILIA
     Dosage: INTRAVENOUS
     Route: 042
  8. ANTIHEMOPHILIC FACTOR (HUMAN) [Suspect]
     Indication: HAEMOPHILIA
     Dosage: INTRAVENOUS
     Route: 042
  9. ANTIHEMOPHILIC FACTOR (HUMAN) [Suspect]
     Indication: HAEMOPHILIA
     Dosage: INTRAVENOUS
     Route: 042
  10. FACTOR IX COMPLEX [Suspect]
     Indication: HAEMOPHILIA
     Dosage: INTRAVENOUS
     Route: 042
  11. ANTIHEMOPHILIC FACTOR (HYLAND) (FACTOR VIII) [Suspect]
     Indication: FACTOR VIII DEFICIENCY
     Dates: start: 19760101, end: 19830101
  12. KOATE [Suspect]
     Indication: FACTOR VIII DEFICIENCY
     Dates: start: 19800101, end: 19840101
  13. HEMOFIL [Suspect]
     Indication: FACTOR VIII DEFICIENCY
     Dates: start: 19810101, end: 19850101
  14. IMMUNATE (BAXTER) (FACTOR VIII (ANTIHAEMOPHILIC FACTOR)) [Suspect]
     Indication: FACTOR VIII DEFICIENCY
     Dates: start: 19810101, end: 19870101
  15. MONOCLATE [Suspect]
     Indication: FACTOR VIII DEFICIENCY
     Dates: start: 19860101, end: 19900101
  16. ALPHA (ALPHA THERAPEUTIC) [Suspect]
     Indication: FACTOR VIII DEFICIENCY
     Dates: start: 19850101, end: 19880101
  17. PROFILATE [Suspect]
     Indication: FACTOR VIII DEFICIENCY
     Dates: start: 19880101, end: 19900101
  18. OCTANATE (ALPHA) (FACTOR VIII) [Suspect]
     Indication: FACTOR VIII DEFICIENCY
     Dates: start: 19880101, end: 19900101
  19. KOATE [Suspect]
     Indication: FACTOR VIII DEFICIENCY
     Dates: start: 19870101, end: 19900101

REACTIONS (5)
  - HEPATITIS A [None]
  - HEPATITIS B [None]
  - HEPATITIS C [None]
  - HIV INFECTION [None]
  - PHARMACEUTICAL PRODUCT COMPLAINT [None]
